FAERS Safety Report 12596869 (Version 2)
Quarter: 2016Q3

REPORT INFORMATION
  Report Type: Report from Study
  Country: US (occurrence: US)
  Receive Date: 20160727
  Receipt Date: 20160804
  Transmission Date: 20161109
  Serious: Yes (Death, Other)
  Sender: FDA-Public Use
  Company Number: US-AMGEN-USASL2016095157

PATIENT
  Age: 83 Year
  Sex: Female
  Weight: 76.6 kg

DRUGS (2)
  1. PROLIA [Suspect]
     Active Substance: DENOSUMAB
     Dosage: UNK
     Route: 065
     Dates: start: 20160211
  2. PROLIA [Suspect]
     Active Substance: DENOSUMAB
     Indication: OSTEOPOROSIS
     Dosage: UNK
     Route: 065
     Dates: start: 20150716

REACTIONS (3)
  - Asthenia [Unknown]
  - Cardiopulmonary failure [Fatal]
  - Fatigue [Unknown]

NARRATIVE: CASE EVENT DATE: 20160229
